FAERS Safety Report 5479533-5 (Version None)
Quarter: 2007Q4

REPORT INFORMATION
  Report Type: 
  Country: None (occurrence: None)
  Receive Date: 20071008
  Receipt Date: 20070926
  Transmission Date: 20080405
  Serious: Yes (Other)
  Sender: FDA-Public Use
  Company Number: JP-ROCHE-521732

PATIENT
  Age: 8 Year
  Sex: Male

DRUGS (2)
  1. ROCEPHIN [Suspect]
     Indication: PYREXIA
     Route: 041
     Dates: start: 20070914, end: 20070917
  2. ROCEPHIN [Suspect]
     Route: 041
     Dates: start: 20070918, end: 20070918

REACTIONS (1)
  - PANCREATITIS [None]
